FAERS Safety Report 13597825 (Version 1)
Quarter: 2017Q2

REPORT INFORMATION
  Report Type: Spontaneous
  Country: US (occurrence: US)
  Receive Date: 20170531
  Receipt Date: 20170531
  Transmission Date: 20170830
  Serious: Yes (Other)
  Sender: FDA-Public Use
  Company Number: US-WEST-WARD PHARMACEUTICALS CORP.-US-H14001-17-01700

PATIENT
  Age: 80 Year
  Sex: Male

DRUGS (1)
  1. PREDNISONE. [Suspect]
     Active Substance: PREDNISONE
     Indication: COLITIS
     Route: 048

REACTIONS (4)
  - Nocardiosis [Recovering/Resolving]
  - Septic embolus [Recovering/Resolving]
  - Immunodeficiency [Unknown]
  - Endocarditis bacterial [Recovering/Resolving]
